FAERS Safety Report 26038121 (Version 1)
Quarter: 2025Q4

REPORT INFORMATION
  Report Type: Spontaneous
  Country: US (occurrence: US)
  Receive Date: 20251113
  Receipt Date: 20251113
  Transmission Date: 20260118
  Serious: Yes (Death, Hospitalization, Other)
  Sender: AUROBINDO
  Company Number: US-AUROBINDO-07-AUR-00965

PATIENT
  Age: 9 Year
  Sex: Male

DRUGS (1)
  1. CEPHALEXIN [Suspect]
     Active Substance: CEPHALEXIN
     Indication: Cellulitis
     Dosage: UNK
     Route: 065

REACTIONS (6)
  - Myocarditis [Fatal]
  - Hypersensitivity [Fatal]
  - Disseminated intravascular coagulation [Fatal]
  - Anuria [Unknown]
  - Hepatic function abnormal [Unknown]
  - Dermatitis allergic [Unknown]
